FAERS Safety Report 9812261 (Version 1)
Quarter: 2014Q1

REPORT INFORMATION
  Report Type: Spontaneous
  Country: US (occurrence: US)
  Receive Date: 20140113
  Receipt Date: 20140113
  Transmission Date: 20141002
  Serious: Yes (Death)
  Sender: FDA-Public Use
  Company Number: US-ASTRAZENECA-2014SE01808

PATIENT
  Age: 30 Year
  Sex: Female

DRUGS (4)
  1. LISINOPRIL [Suspect]
     Route: 048
  2. LORAZEPAM [Suspect]
     Route: 065
  3. CARISOPRODOL [Suspect]
     Route: 065
  4. ACETAMINOPHEN/HYDROCODONE [Suspect]
     Route: 065

REACTIONS (3)
  - Toxicity to various agents [Fatal]
  - Completed suicide [Fatal]
  - Cardio-respiratory arrest [Fatal]
